FAERS Safety Report 6778817-8 (Version None)
Quarter: 2010Q2

REPORT INFORMATION
  Report Type: 
  Country: None (occurrence: None)
  Receive Date: 20100618
  Receipt Date: 20100604
  Transmission Date: 20101027
  Serious: No
  Sender: FDA-Public Use
  Company Number: US-B.I. PHARMACEUTICALS,INC./RIDGEFIELD-2010-BP-06405BP

PATIENT

DRUGS (3)
  1. VIRAMUNE [Suspect]
     Route: 048
     Dates: start: 20030101
  2. EPZICOM [Concomitant]
  3. COMBIVIR [Concomitant]
     Dates: start: 20030101, end: 20060101

REACTIONS (5)
  - ANAEMIA [None]
  - BURNING SENSATION [None]
  - DEPRESSION [None]
  - FACIAL WASTING [None]
  - FATIGUE [None]
